FAERS Safety Report 21254376 (Version 1)
Quarter: 2022Q3

REPORT INFORMATION
  Report Type: Spontaneous
  Country: PT (occurrence: PT)
  Receive Date: 20220825
  Receipt Date: 20220825
  Transmission Date: 20221026
  Serious: Yes (Hospitalization)
  Sender: FDA-Public Use
  Company Number: PT-MYLANLABS-2022M1088571

PATIENT
  Sex: Female
  Weight: 1.47 kg

DRUGS (4)
  1. BISOPROLOL [Suspect]
     Active Substance: BISOPROLOL
     Indication: Left ventricle outflow tract obstruction
     Dosage: 30 MILLIGRAM, QD
     Route: 064
  2. BISOPROLOL [Suspect]
     Active Substance: BISOPROLOL
     Dosage: 15 MILLIGRAM, QD
     Route: 064
  3. BISOPROLOL [Suspect]
     Active Substance: BISOPROLOL
     Dosage: 20 MILLIGRAM, QD
     Route: 064
  4. DEXAMETHASONE [Suspect]
     Active Substance: DEXAMETHASONE
     Indication: Maternal therapy to enhance foetal lung maturity
     Dosage: UNK
     Route: 064

REACTIONS (2)
  - Foetal growth restriction [Recovered/Resolved]
  - Foetal exposure during pregnancy [Recovered/Resolved]
